FAERS Safety Report 8593866-5 (Version None)
Quarter: 2012Q3

REPORT INFORMATION
  Report Type: 
  Country: None (occurrence: None)
  Receive Date: 20120814
  Receipt Date: 20120803
  Transmission Date: 20120928
  Serious: Yes (Hospitalization)
  Sender: FDA-Public Use
  Company Number: US-ELI_LILLY_AND_COMPANY-US201208001883

PATIENT
  Sex: Male

DRUGS (5)
  1. FORTEO [Suspect]
     Dosage: 20 MG, QD
  2. IBUPROFEN (ADVIL) [Concomitant]
  3. FORTEO [Suspect]
     Indication: OSTEOPOROSIS
     Dosage: 20 MG, QD
     Dates: start: 20120501
  4. BENADRYL [Concomitant]
  5. FORTEO [Suspect]
     Dosage: 20 MG, QD

REACTIONS (9)
  - FEAR [None]
  - DEHYDRATION [None]
  - MUSCULOSKELETAL DISCOMFORT [None]
  - BONE DISORDER [None]
  - ABDOMINAL DISCOMFORT [None]
  - DRUG ADMINISTRATION ERROR [None]
  - BONE DENSITY ABNORMAL [None]
  - INJECTION SITE HAEMATOMA [None]
  - MALAISE [None]
